FAERS Safety Report 20791517 (Version 2)
Quarter: 2022Q2

REPORT INFORMATION
  Report Type: Report from Study
  Country: US (occurrence: US)
  Receive Date: 20220505
  Receipt Date: 20220608
  Transmission Date: 20220720
  Serious: Yes (Life-Threatening, Other)
  Sender: FDA-Public Use
  Company Number: US-BRISTOL-MYERS SQUIBB COMPANY-2022-027409

PATIENT
  Age: 82 Year
  Sex: Female
  Weight: 124.74 kg

DRUGS (1)
  1. POMALYST [Suspect]
     Active Substance: POMALIDOMIDE
     Indication: Plasma cell myeloma
     Dosage: 2MG/1 CAP FREQUENCY 21 DAYS 7 DAYS OFF
     Route: 048
     Dates: start: 20210125

REACTIONS (9)
  - Ear discomfort [Unknown]
  - Balance disorder [Unknown]
  - Product dose omission in error [Unknown]
  - Bruxism [Unknown]
  - Arthropathy [Unknown]
  - Muscle spasms [Unknown]
  - Dyspnoea [Unknown]
  - Pigmentation disorder [Unknown]
  - Eye disorder [Unknown]
